FAERS Safety Report 7207344-9 (Version None)
Quarter: 2011Q1

REPORT INFORMATION
  Report Type: 
  Country: None (occurrence: None)
  Receive Date: 20110103
  Receipt Date: 20101228
  Transmission Date: 20110831
  Serious: Yes (Other)
  Sender: FDA-Public Use
  Company Number: US-AMGEN-USASP2010012115

PATIENT

DRUGS (1)
  1. ENBREL [Suspect]
     Indication: RHEUMATOID ARTHRITIS
     Dates: start: 19980101

REACTIONS (6)
  - MALAISE [None]
  - FIBROMYALGIA [None]
  - DRY EYE [None]
  - AUTOIMMUNE DISORDER [None]
  - RHEUMATOID ARTHRITIS [None]
  - NASAL DRYNESS [None]
